FAERS Safety Report 5052774-7 (Version None)
Quarter: 2006Q3

REPORT INFORMATION
  Report Type: 
  Country: None (occurrence: None)
  Receive Date: 20060717
  Receipt Date: 20060711
  Transmission Date: 20061208
  Serious: Yes (Death)
  Sender: FDA-Public Use
  Company Number: PHBS2006TW10296

PATIENT
  Age: 56 Year
  Sex: Female

DRUGS (1)
  1. GLEEVEC [Suspect]
     Dosage: 400 MG/D
     Route: 065
     Dates: start: 20060128, end: 20060623

REACTIONS (1)
  - DEATH [None]
